FAERS Safety Report 21438841 (Version 1)
Quarter: 2022Q4

REPORT INFORMATION
  Report Type: Spontaneous
  Country: US (occurrence: US)
  Receive Date: 20221011
  Receipt Date: 20221011
  Transmission Date: 20230113
  Serious: No
  Sender: FDA-Public Use
  Company Number: US-CIPLA LTD.-2022US02519

PATIENT
  Sex: Male

DRUGS (4)
  1. BUPROPION [Suspect]
     Active Substance: BUPROPION
     Indication: Schizophrenia
     Dosage: UNK
     Route: 065
     Dates: start: 1984
  2. VENLAFAXINE [Concomitant]
     Active Substance: VENLAFAXINE HYDROCHLORIDE
     Indication: Depression
     Dosage: 0.4 MILLIGRAM, QD
     Route: 065
     Dates: start: 1984
  3. ARIPIPRAZOLE [Concomitant]
     Active Substance: ARIPIPRAZOLE
     Indication: Schizophrenia
     Dosage: 10 MILLIGRAM, QD
     Route: 065
     Dates: start: 1984
  4. TAMSULOSIN [Concomitant]
     Active Substance: TAMSULOSIN
     Indication: Dyspepsia
     Dosage: 150 MILLIGRAM, QD
     Route: 065
     Dates: start: 1984

REACTIONS (1)
  - Flatulence [Not Recovered/Not Resolved]
